FAERS Safety Report 11431425 (Version 2)
Quarter: 2015Q4

REPORT INFORMATION
  Report Type: Spontaneous
  Country: EG (occurrence: EG)
  Receive Date: 20150828
  Receipt Date: 20151007
  Transmission Date: 20160304
  Serious: Yes (Hospitalization, Other)
  Sender: FDA-Public Use
  Company Number: EG-NOVOPROD-461207

PATIENT
  Sex: Female
  Weight: 2.4 kg

DRUGS (8)
  1. IRON [Concomitant]
     Active Substance: IRON
     Indication: ANAEMIA
     Dosage: BID; START FROM 2ND MONTH OF PREGNANCY
     Route: 064
     Dates: end: 20150709
  2. VITAMIN B [Concomitant]
     Active Substance: VITAMIN B
     Indication: NEURITIS
     Dosage: SINGLE; STARTED FROM THE START OF PREGNANCY
     Route: 064
  3. MIXTARD 30 HM PENFILL [Suspect]
     Active Substance: INSULIN HUMAN
     Indication: TYPE 1 DIABETES MELLITUS
     Dosage: 30 IU, QD (20 IU/MORNING - 10 IU/NIGHT)
     Route: 064
  4. CALCIUM [Concomitant]
     Active Substance: CALCIUM
     Dosage: BID; START FROM 2ND MONTH OF PREGNANCY
     Route: 064
     Dates: end: 20150709
  5. VITAMIN B [Concomitant]
     Active Substance: VITAMIN B
     Dosage: AMPULE, START FROM THE 5TH-6TH MONTH OF PREGNANCY
     Route: 064
     Dates: end: 20150709
  6. FOLIC ACID. [Concomitant]
     Active Substance: FOLIC ACID
     Dosage: SINGLE; STARTED AT 1ST TRIMESTER + STOPPED AFTER 1ST TRIMESTER
     Route: 064
  7. MIXTARD 30 HM PENFILL [Suspect]
     Active Substance: INSULIN HUMAN
     Dosage: 35 IU, QD (25 IU/MORNING - 10 IU/NIGHT)
     Route: 064
     Dates: end: 20150709
  8. PROGEST [Concomitant]
     Indication: UTERINE CONTRACTIONS DURING PREGNANCY
     Dosage: SINGLE; ONLY FOR 1 WEEK AT 5TH MONTH OF GESTATION + 7TH MONTH OF GESTATION
     Route: 064
     Dates: end: 20150709

REACTIONS (6)
  - Premature baby [Unknown]
  - Blood glucose fluctuation [Recovered/Resolved]
  - Lower respiratory tract infection [Recovered/Resolved]
  - Low birth weight baby [Not Recovered/Not Resolved]
  - Immature respiratory system [Recovered/Resolved]
  - Foetal exposure during pregnancy [Recovered/Resolved]

NARRATIVE: CASE EVENT DATE: 201507
